FAERS Safety Report 4664842-X (Version None)
Quarter: 2005Q2

REPORT INFORMATION
  Report Type: 
  Country: None (occurrence: None)
  Receive Date: 20050517
  Receipt Date: 20050504
  Transmission Date: 20051028
  Serious: Yes (Other)
  Sender: FDA-Public Use
  Company Number: HQWYE559005MAY05

PATIENT
  Age: 81 Year
  Sex: Male

DRUGS (3)
  1. AMIODARONE HCL [Suspect]
     Indication: ARRHYTHMIA
     Dosage: 400 MG 2X PER 1 DAY ORAL
     Route: 048
     Dates: start: 20050420
  2. SERMION (NICERGOLINE) [Concomitant]
  3. LORAZEPAM [Concomitant]

REACTIONS (2)
  - DIZZINESS [None]
  - LOSS OF CONSCIOUSNESS [None]
